FAERS Safety Report 16931098 (Version 1)
Quarter: 2019Q4

REPORT INFORMATION
  Report Type: Spontaneous
  Country: PT (occurrence: PT)
  Receive Date: 20191017
  Receipt Date: 20191017
  Transmission Date: 20200122
  Serious: Yes (Death, Other)
  Sender: FDA-Public Use
  Company Number: PT-GALDERMA-PT19061412

PATIENT
  Age: 65 Year
  Sex: Male

DRUGS (5)
  1. METRONIDAZOLE. [Suspect]
     Active Substance: METRONIDAZOLE
     Indication: PRODUCT USED FOR UNKNOWN INDICATION
     Route: 065
     Dates: start: 20181116, end: 20190121
  2. CEFTRIAXONE. [Concomitant]
     Active Substance: CEFTRIAXONE
     Indication: MUCORMYCOSIS
     Dosage: 400MG
     Dates: start: 20181116, end: 20190120
  3. AMBISOME [Concomitant]
     Active Substance: AMPHOTERICIN B
     Indication: MUCORMYCOSIS
     Dosage: 400MG
     Route: 065
     Dates: start: 20181121, end: 20190121
  4. METHYLPREDNISOLONE. [Concomitant]
     Active Substance: METHYLPREDNISOLONE
     Indication: PRODUCT USED FOR UNKNOWN INDICATION
     Route: 065
     Dates: start: 20181116, end: 20190121
  5. ALBUMINA [Concomitant]
     Active Substance: ALBUMIN HUMAN
     Indication: PRODUCT USED FOR UNKNOWN INDICATION
     Route: 065

REACTIONS (8)
  - Rhinocerebral mucormycosis [Fatal]
  - Sinusitis [Unknown]
  - Carotid artery disease [Unknown]
  - Hypoalbuminaemia [Unknown]
  - Carotid artery insufficiency [Not Recovered/Not Resolved]
  - Systemic mycosis [Fatal]
  - Cerebrovascular accident [Fatal]
  - Oedema [Unknown]

NARRATIVE: CASE EVENT DATE: 20190121
